FAERS Safety Report 10059759 (Version 2)
Quarter: 2014Q2

REPORT INFORMATION
  Report Type: Report from Study
  Country: NZ (occurrence: NZ)
  Receive Date: 20140404
  Receipt Date: 20140411
  Transmission Date: 20141212
  Serious: Yes (Hospitalization)
  Sender: FDA-Public Use
  Company Number: NZ-PFIZER INC-2014091949

PATIENT
  Age: 48 Year
  Sex: Male
  Weight: 117.1 kg

DRUGS (3)
  1. TOFACITINIB CITRATE [Suspect]
     Indication: COLITIS ULCERATIVE
     Dosage: 10 MG, 2X/DAY
     Route: 048
     Dates: start: 20131004, end: 20140401
  2. METFORMIN [Concomitant]
     Indication: TYPE 2 DIABETES MELLITUS
     Dosage: 500 MG, 2X/DAY
     Route: 048
     Dates: start: 20100728
  3. MESALAZINE [Concomitant]
     Indication: COLITIS ULCERATIVE
     Dosage: 2 G, 2X/DAY
     Route: 048
     Dates: start: 20120201

REACTIONS (1)
  - Renal colic [Recovering/Resolving]
